FAERS Safety Report 8539958-8 (Version None)
Quarter: 2012Q2

REPORT INFORMATION
  Report Type: 
  Country: None (occurrence: None)
  Receive Date: 20120412
  Receipt Date: 20090107
  Transmission Date: 20120825
  Serious: Yes (Other)
  Sender: FDA-Public Use
  Company Number: PHEH2005US10869

PATIENT
  Age: 85 Year
  Sex: Male

DRUGS (6)
  1. ZOMETA [Suspect]
     Indication: MULTIPLE MYELOMA
     Dosage: 4 MG, MONTHYLY, INTRAVENOUS
     Route: 042
     Dates: start: 20020101, end: 20050101
  2. ZOCOR [Concomitant]
  3. THALIDOMIDE [Concomitant]
  4. AREDIA [Suspect]
     Indication: MULTIPLE MYELOMA
     Dosage: 90 MG, Q 4 WEEKS, INTRAVENOUS
     Route: 042
     Dates: start: 20000101, end: 20010101
  5. VELCADE [Concomitant]
  6. FLOMAX [Concomitant]

REACTIONS (10)
  - OSTEONECROSIS [None]
  - TOOTHACHE [None]
  - DEBRIDEMENT [None]
  - BONE DISORDER [None]
  - SEQUESTRECTOMY [None]
  - DENTAL IMPLANTATION [None]
  - MEDICAL DEVICE REMOVAL [None]
  - BONE FRAGMENTATION [None]
  - IMPAIRED HEALING [None]
  - OSTEOMYELITIS [None]
